APPROVED DRUG PRODUCT: CYCLOCORT
Active Ingredient: AMCINONIDE
Strength: 0.1% **Federal Register determination that product was not discontinued or withdrawn for safety or effectiveness reasons**
Dosage Form/Route: CREAM;TOPICAL
Application: N018116 | Product #002
Applicant: ASTELLAS PHARMA US INC
Approved: Approved Prior to Jan 1, 1982 | RLD: Yes | RS: No | Type: DISCN